FAERS Safety Report 8076379-9 (Version None)
Quarter: 2012Q1

REPORT INFORMATION
  Report Type: 
  Country: None (occurrence: None)
  Receive Date: 20120127
  Receipt Date: 20120127
  Transmission Date: 20120608
  Serious: Yes (Disabling)
  Sender: FDA-Public Use
  Company Number: None

PATIENT
  Sex: Male
  Weight: 78 kg

DRUGS (1)
  1. ANGIOMAX [Suspect]
     Indication: STENT PLACEMENT
     Dosage: BOLUS 60MG -12 ML-
     Route: 040
     Dates: start: 20111221, end: 20111221

REACTIONS (2)
  - EXTRAVASATION [None]
  - DRUG LEVEL BELOW THERAPEUTIC [None]
